FAERS Safety Report 9017533 (Version 1)
Quarter: 2013Q1

REPORT INFORMATION
  Report Type: Spontaneous
  Country: BR (occurrence: BR)
  Receive Date: 20130117
  Receipt Date: 20130117
  Transmission Date: 20140127
  Serious: Yes (Other)
  Sender: FDA-Public Use
  Company Number: BR-PFIZER INC-2013021411

PATIENT
  Age: 65 Year
  Sex: Male

DRUGS (2)
  1. PRISTIQ [Suspect]
     Indication: FEELING ABNORMAL
     Dosage: 50 MG, UNK
     Route: 048
     Dates: start: 20130116
  2. PRISTIQ [Suspect]
     Indication: CHEST DISCOMFORT

REACTIONS (5)
  - Diabetes mellitus [Unknown]
  - Somnolence [Unknown]
  - Headache [Unknown]
  - Tinnitus [Unknown]
  - Dizziness [Unknown]
